FAERS Safety Report 5062731-2 (Version None)
Quarter: 2006Q3

REPORT INFORMATION
  Report Type: 
  Country: None (occurrence: None)
  Receive Date: 20060726
  Receipt Date: 20060711
  Transmission Date: 20061208
  Serious: Yes (Hospitalization)
  Sender: FDA-Public Use
  Company Number: AU-BOEHRINGER INGELHEIM PHARMACEUTICALS, INC.-2006-BP-08006AU

PATIENT
  Sex: Male
  Weight: 70 kg

DRUGS (1)
  1. MICARDIS [Suspect]
     Indication: HYPERTENSION
     Route: 048
     Dates: start: 20060406, end: 20060410

REACTIONS (3)
  - DEHYDRATION [None]
  - GOUT [None]
  - RENAL FAILURE ACUTE [None]
